FAERS Safety Report 6390938-0 (Version None)
Quarter: 2009Q4

REPORT INFORMATION
  Report Type: 
  Country: None (occurrence: None)
  Receive Date: 20091003
  Receipt Date: 20090929
  Transmission Date: 20100525
  Serious: Yes (Other)
  Sender: FDA-Public Use
  Company Number: 2009SP025759

PATIENT
  Age: 9 Year
  Sex: Male
  Weight: 46 kg

DRUGS (9)
  1. CLARITIN [Suspect]
     Indication: RHINITIS ALLERGIC
     Dosage: 10 MG; PO
     Route: 048
     Dates: start: 20090714, end: 20090810
  2. TEGRETOL (CON.) [Concomitant]
  3. TEGRETOL [Concomitant]
  4. RISPERDAL (CON.) [Concomitant]
  5. MUCODYNE (CON.) [Concomitant]
  6. ZITHROMAC (CON.) [Concomitant]
  7. BESTRON (CON.) [Concomitant]
  8. RINDERON (CON.) [Concomitant]
  9. ALEVAIRE (CON.) [Concomitant]

REACTIONS (2)
  - EPILEPSY [None]
  - VOMITING [None]
